FAERS Safety Report 26045788 (Version 2)
Quarter: 2025Q4

REPORT INFORMATION
  Report Type: Spontaneous
  Country: EU (occurrence: EU)
  Receive Date: 20251114
  Receipt Date: 20251118
  Transmission Date: 20260119
  Serious: Yes (Other)
  Sender: ROCHE
  Company Number: EU-ROCHE-10000435291

PATIENT
  Age: 77 Year
  Sex: Male
  Weight: 72 kg

DRUGS (6)
  1. VABYSMO [Suspect]
     Active Substance: FARICIMAB-SVOA
     Indication: Neovascular age-related macular degeneration
     Dosage: ADMINISTERED ON RIGHT EYE.?LAST INJECTION ON 31MAR2025., STRENGTH 120 MG/ML
     Route: 050
     Dates: start: 20231122
  2. VABYSMO [Suspect]
     Active Substance: FARICIMAB-SVOA
     Dosage: ADMINISTERED ON LEFT EYE.?LAST INJECTION ON 11APR2025.
     Route: 050
     Dates: start: 20231122
  3. spiron [Concomitant]
     Indication: Hypertension
     Dates: start: 2021
  4. LOSARTAN [Concomitant]
     Active Substance: LOSARTAN
     Indication: Hypertension
     Dosage: STRENGTH: 100 MG.
     Dates: start: 2021
  5. EZETIMIBE [Concomitant]
     Active Substance: EZETIMIBE
     Indication: Hypercholesterolaemia
     Dosage: STRENGTH: 10 MG.
     Dates: start: 2023
  6. EDOXABAN [Concomitant]
     Active Substance: EDOXABAN
     Indication: Thrombosis prophylaxis
     Dosage: STRENGTH: 60 MG.
     Dates: start: 2021

REACTIONS (2)
  - Vitritis [Recovering/Resolving]
  - Blindness [Recovered/Resolved]

NARRATIVE: CASE EVENT DATE: 20250501
